FAERS Safety Report 5906127-7 (Version None)
Quarter: 2008Q4

REPORT INFORMATION
  Report Type: 
  Country: None (occurrence: None)
  Receive Date: 20081002
  Receipt Date: 20080925
  Transmission Date: 20090506
  Serious: Yes (Hospitalization, Other)
  Sender: FDA-Public Use
  Company Number: PHHY2008DE21091

PATIENT
  Sex: Male

DRUGS (7)
  1. DIOVAN [Suspect]
     Indication: HYPERTENSION
     Dosage: UNK
     Route: 048
     Dates: end: 20060101
  2. DIOVAN [Interacting]
     Dosage: 40 MG, BID
     Route: 048
     Dates: start: 20080712, end: 20080726
  3. DIOVAN [Interacting]
     Dosage: 80 MG, BID
     Route: 048
     Dates: start: 20080726, end: 20080901
  4. DIOVAN [Interacting]
     Dosage: 80 MG, TID
     Route: 048
     Dates: start: 20080901
  5. DIOVAN [Interacting]
     Dosage: 160 MG, ONCE/SINGLE
     Route: 048
     Dates: start: 20080911, end: 20080911
  6. IBUPROFEN [Interacting]
     Indication: PAIN
     Dosage: 800 MG, PER DAY
  7. TRAMAL [Concomitant]
     Indication: PAIN
     Dosage: 100 MG, BID
     Dates: start: 20080801

REACTIONS (7)
  - BLOOD PRESSURE INADEQUATELY CONTROLLED [None]
  - BLOOD PRESSURE INCREASED [None]
  - DRUG INTERACTION [None]
  - HEART RATE INCREASED [None]
  - MUSCLE TWITCHING [None]
  - PAIN [None]
  - SURGERY [None]
